FAERS Safety Report 13009445 (Version 1)
Quarter: 2016Q4

REPORT INFORMATION
  Report Type: Spontaneous
  Country: US (occurrence: US)
  Receive Date: 20161208
  Receipt Date: 20161208
  Transmission Date: 20170207
  Serious: No
  Sender: FDA-Public Use
  Company Number: US-PERRIGO-16US017114

PATIENT
  Age: 81 Year
  Sex: Female
  Weight: 58.5 kg

DRUGS (3)
  1. NASAL SPRAY [Concomitant]
     Active Substance: UNSPECIFIED INGREDIENT
     Indication: SEASONAL ALLERGY
     Dosage: UNKNOWN, PRN
     Route: 045
  2. MULTIVITAMINS, PLAIN [Concomitant]
     Active Substance: VITAMINS
     Indication: SUPPLEMENTATION THERAPY
     Dosage: UNK
     Route: 048
  3. MINOXIDIL. [Suspect]
     Active Substance: MINOXIDIL
     Indication: ALOPECIA
     Dosage: 1 ML, BID
     Route: 061
     Dates: start: 201602, end: 20160612

REACTIONS (3)
  - Application site pruritus [Recovering/Resolving]
  - Drug ineffective [Unknown]
  - Application site dryness [Recovering/Resolving]

NARRATIVE: CASE EVENT DATE: 201602
